FAERS Safety Report 6135327-9 (Version None)
Quarter: 2009Q1

REPORT INFORMATION
  Report Type: 
  Country: None (occurrence: None)
  Receive Date: 20090327
  Receipt Date: 20090109
  Transmission Date: 20090719
  Serious: No
  Sender: FDA-Public Use
  Company Number: US-BRISTOL-MYERS SQUIBB COMPANY-14466957

PATIENT

DRUGS (2)
  1. SPRYCEL [Suspect]
     Indication: ACUTE LYMPHOCYTIC LEUKAEMIA
     Dosage: DOSE REDUCED TO 50 MG/DAY
  2. COUMADIN [Suspect]

REACTIONS (1)
  - PROTHROMBIN TIME ABNORMAL [None]
